FAERS Safety Report 8143760-9 (Version None)
Quarter: 2012Q1

REPORT INFORMATION
  Report Type: 
  Country: None (occurrence: None)
  Receive Date: 20120214
  Receipt Date: 20120206
  Transmission Date: 20120608
  Serious: Yes (Hospitalization)
  Sender: FDA-Public Use
  Company Number: 129613

PATIENT
  Age: 37 Year
  Sex: Female
  Weight: 68 kg

DRUGS (1)
  1. LEUCOVORIN CALCIUM [Suspect]
     Indication: COLORECTAL CANCER METASTATIC
     Dosage: 400MG/M2 - DAY 1 EVERY 14 DAYS
     Dates: start: 20110705, end: 20110810

REACTIONS (15)
  - NEOPLASM PROGRESSION [None]
  - PULMONARY OEDEMA [None]
  - LUNG NEOPLASM [None]
  - MALIGNANT ASCITES [None]
  - COLORECTAL CANCER METASTATIC [None]
  - TOXICITY TO VARIOUS AGENTS [None]
  - PLEURAL EFFUSION [None]
  - VOMITING [None]
  - ABDOMINAL PAIN [None]
  - HEPATIC STEATOSIS [None]
  - RECTAL HAEMORRHAGE [None]
  - HEPATOMEGALY [None]
  - GENERAL PHYSICAL HEALTH DETERIORATION [None]
  - RENAL FAILURE ACUTE [None]
  - GASTROINTESTINAL DISORDER [None]
